FAERS Safety Report 25237095 (Version 1)
Quarter: 2025Q2

REPORT INFORMATION
  Report Type: Spontaneous
  Country: FR (occurrence: FR)
  Receive Date: 20250425
  Receipt Date: 20250425
  Transmission Date: 20250717
  Serious: Yes (Other)
  Sender: RANBAXY
  Company Number: FR-AFSSAPS-LL2025000225

PATIENT
  Age: 54 Year
  Sex: Female
  Weight: 47 kg

DRUGS (2)
  1. AZITHROMYCIN [Suspect]
     Active Substance: AZITHROMYCIN
     Indication: Diarrhoea
     Dosage: 500 MILLIGRAM, DAILY
     Route: 048
     Dates: start: 20250106, end: 20250116
  2. ALINIA [Suspect]
     Active Substance: NITAZOXANIDE
     Indication: Diarrhoea
     Dosage: 2000 MILLIGRAM, DAILY
     Route: 048
     Dates: start: 20250106, end: 20250116

REACTIONS (3)
  - Hepatitis cholestatic [Recovered/Resolved]
  - Hepatic cytolysis [Recovered/Resolved]
  - Eosinophilia [Recovered/Resolved]

NARRATIVE: CASE EVENT DATE: 20250110
